FAERS Safety Report 8039729-5 (Version None)
Quarter: 2012Q1

REPORT INFORMATION
  Report Type: 
  Country: None (occurrence: None)
  Receive Date: 20120111
  Receipt Date: 20111220
  Transmission Date: 20120608
  Serious: No
  Sender: FDA-Public Use
  Company Number: US-AMGEN-USASP2011068277

PATIENT
  Age: 50 Year
  Sex: Female

DRUGS (7)
  1. DESONIDE [Concomitant]
     Dosage: UNK
  2. LOPRESSOR [Concomitant]
     Dosage: UNK
  3. ENBREL [Suspect]
     Indication: PSORIASIS
     Dosage: 50 MG, 2 TIMES/WK
     Dates: start: 20111101
  4. NORVASC [Concomitant]
     Dosage: UNK
  5. PROTOPIC [Concomitant]
     Dosage: UNK
  6. RALOXIFENE HCL [Concomitant]
     Dosage: 500 MG, UNK
  7. TRIAMCINOLONE [Concomitant]
     Dosage: UNK

REACTIONS (6)
  - INJECTION SITE RASH [None]
  - INJECTION SITE ERYTHEMA [None]
  - INJECTION SITE PRURITUS [None]
  - INJECTION SITE PAIN [None]
  - INJECTION SITE SWELLING [None]
  - INJECTION SITE WARMTH [None]
